FAERS Safety Report 25350219 (Version 1)
Quarter: 2025Q2

REPORT INFORMATION
  Report Type: Spontaneous
  Country: AU (occurrence: AU)
  Receive Date: 20250523
  Receipt Date: 20250523
  Transmission Date: 20250716
  Serious: Yes (Other)
  Sender: DR REDDYS
  Company Number: AU-AUS-AUS/2025/05/007390

PATIENT
  Sex: Male

DRUGS (9)
  1. FINGOLIMOD [Suspect]
     Active Substance: FINGOLIMOD
     Indication: Product used for unknown indication
     Route: 065
  2. TERIFLUNOMIDE [Suspect]
     Active Substance: TERIFLUNOMIDE
     Indication: Product used for unknown indication
     Route: 065
  3. DIMETHYL FUMARATE [Suspect]
     Active Substance: DIMETHYL FUMARATE
     Indication: Product used for unknown indication
     Route: 065
  4. ALEMTUZUMAB [Suspect]
     Active Substance: ALEMTUZUMAB
     Indication: Product used for unknown indication
     Route: 065
  5. NATALIZUMAB [Suspect]
     Active Substance: NATALIZUMAB
     Indication: Product used for unknown indication
     Route: 065
  6. CLADRIBINE [Suspect]
     Active Substance: CLADRIBINE
     Indication: Product used for unknown indication
     Route: 065
  7. GLATIRAMER ACETATE [Suspect]
     Active Substance: GLATIRAMER ACETATE
     Indication: Product used for unknown indication
     Route: 065
  8. OCRELIZUMAB [Suspect]
     Active Substance: OCRELIZUMAB
     Indication: Product used for unknown indication
     Route: 065
  9. PEGINTERFERON BETA-1A [Suspect]
     Active Substance: PEGINTERFERON BETA-1A
     Indication: Product used for unknown indication
     Route: 065

REACTIONS (1)
  - Multiple sclerosis relapse [Unknown]
